FAERS Safety Report 22396799 (Version 1)
Quarter: 2023Q2

REPORT INFORMATION
  Report Type: Spontaneous
  Country: MY (occurrence: MY)
  Receive Date: 20230601
  Receipt Date: 20230601
  Transmission Date: 20230721
  Serious: Yes (Other)
  Sender: FDA-Public Use
  Company Number: MY-009507513-2305MYS008996

PATIENT
  Sex: Male
  Weight: 162 kg

DRUGS (4)
  1. ERTAPENEM SODIUM [Suspect]
     Active Substance: ERTAPENEM SODIUM
     Indication: Enterobacter bacteraemia
     Dosage: 1 GRAM, BID
  2. ERTAPENEM SODIUM [Suspect]
     Active Substance: ERTAPENEM SODIUM
     Indication: Acinetobacter infection
  3. COLISTIN [Suspect]
     Active Substance: COLISTIN
     Indication: Enterobacter bacteraemia
     Dosage: 9 MILLION INTERNATIONAL UNIT. STAT
     Route: 042
  4. COLISTIN [Suspect]
     Active Substance: COLISTIN
     Dosage: 9 MILLION INTERNATIONAL UNIT. STAT
     Route: 042

REACTIONS (2)
  - Pathogen resistance [Unknown]
  - Product use issue [Unknown]
